FAERS Safety Report 4948919-7 (Version None)
Quarter: 2006Q1

REPORT INFORMATION
  Report Type: 
  Country: None (occurrence: None)
  Receive Date: 20060321
  Receipt Date: 20060310
  Transmission Date: 20060701
  Serious: Yes (Other)
  Sender: FDA-Public Use
  Company Number: PHBS2006GR03832

PATIENT
  Sex: Male

DRUGS (2)
  1. LESCOL [Suspect]
     Dosage: 40 MG/DAY
  2. EZETROL [Concomitant]

REACTIONS (9)
  - CHOLELITHIASIS [None]
  - CHROMATURIA [None]
  - DIARRHOEA [None]
  - DYSPNOEA [None]
  - FATIGUE [None]
  - GAMMA-GLUTAMYLTRANSFERASE INCREASED [None]
  - PRURITUS [None]
  - PYREXIA [None]
  - TRANSAMINASES INCREASED [None]
